FAERS Safety Report 20887255 (Version 2)
Quarter: 2022Q2

REPORT INFORMATION
  Report Type: Spontaneous
  Country: US (occurrence: US)
  Receive Date: 20220528
  Receipt Date: 20220620
  Transmission Date: 20220721
  Serious: No
  Sender: FDA-Public Use
  Company Number: US-BRISTOL-MYERS SQUIBB COMPANY-2022-041708

PATIENT
  Age: 87 Year
  Sex: Female

DRUGS (1)
  1. REVLIMID [Suspect]
     Active Substance: LENALIDOMIDE
     Indication: Plasma cell myeloma
     Dosage: 7 DAYS OFF 28 DAYS CYCLE
     Route: 048

REACTIONS (5)
  - Peripheral swelling [Unknown]
  - Fall [Unknown]
  - Joint injury [Unknown]
  - Urine analysis abnormal [Unknown]
  - White blood cell count decreased [Unknown]
